FAERS Safety Report 4972086-7 (Version None)
Quarter: 2006Q2

REPORT INFORMATION
  Report Type: 
  Country: None (occurrence: None)
  Receive Date: 20060412
  Receipt Date: 20060412
  Transmission Date: 20061013
  Serious: No
  Sender: FDA-Public Use
  Company Number: None

PATIENT
  Age: 16 Year
  Sex: Female
  Weight: 38.1022 kg

DRUGS (1)
  1. DUAC [Suspect]
     Indication: ACNE
     Dosage: SMALL AMOUNT TO FACE 1 X PER DAY TOP
     Route: 061
     Dates: start: 20060331, end: 20060401

REACTIONS (2)
  - EYE SWELLING [None]
  - URTICARIA [None]
